FAERS Safety Report 15127243 (Version 1)
Quarter: 2018Q3

REPORT INFORMATION
  Report Type: Report from Study
  Country: ES (occurrence: ES)
  Receive Date: 20180710
  Receipt Date: 20180710
  Transmission Date: 20181010
  Serious: Yes (Other)
  Sender: FDA-Public Use
  Company Number: ES-TEVA-2018-ES-922926

PATIENT
  Age: 71 Year
  Sex: Female

DRUGS (8)
  1. METILPREDNISOLONA (888A) [Suspect]
     Active Substance: METHYLPREDNISOLONE
     Dosage: DAY
     Route: 042
     Dates: start: 20170921, end: 20170923
  2. INMUNOGLOBULINA CONEJO ANTI?LINFOCITOS T HUMANOS (2639A) [Suspect]
     Active Substance: LAPINE T-LYMPHOCYTE IMMUNE GLOBULIN
     Indication: RENAL TRANSPLANT
     Dosage: DAY
     Route: 042
     Dates: start: 20170921, end: 20170925
  3. NIFEDIPINO (3253A) [Concomitant]
     Dosage: 30MG/12H
     Route: 048
     Dates: start: 20170921
  4. METAMIZOL (111A) [Concomitant]
     Active Substance: METAMIZOL SODIUM
     Dosage: 2GR/8H
     Route: 042
     Dates: start: 20170921
  5. ACIDO MICOFENOLICO [Suspect]
     Active Substance: MYCOPHENOLIC ACID
     Route: 048
     Dates: start: 20170922
  6. BEMIPARINA (2817A) [Concomitant]
     Active Substance: BEMIPARIN SODIUM
     Dosage: 2500 UI DIA
     Route: 058
     Dates: start: 20170921
  7. CEFTAZIDIMA [Concomitant]
     Active Substance: CEFTAZIDIME
     Dosage: 1 GR DIA
     Route: 042
     Dates: start: 20170921
  8. FUROSEMIDA [Concomitant]
     Active Substance: FUROSEMIDE
     Dosage: DIA
     Route: 042
     Dates: start: 20170921

REACTIONS (1)
  - Hyperamylasaemia [Recovered/Resolved]

NARRATIVE: CASE EVENT DATE: 20170924
